FAERS Safety Report 5996371-5 (Version None)
Quarter: 2008Q4

REPORT INFORMATION
  Report Type: 
  Country: None (occurrence: None)
  Receive Date: 20081212
  Receipt Date: 20081016
  Transmission Date: 20090506
  Serious: No
  Sender: FDA-Public Use
  Company Number: US-ABBOTT-08P-163-0482111-00

PATIENT
  Sex: Female
  Weight: 72.64 kg

DRUGS (4)
  1. HUMIRA [Suspect]
     Indication: PSORIASIS
     Route: 058
     Dates: start: 20081015
  2. HUMIRA [Suspect]
     Route: 058
     Dates: start: 20081007, end: 20081007
  3. CLOBETASOL PROPIONATE [Concomitant]
     Indication: PSORIASIS
     Route: 061
  4. CLOBETASOL PROPIONATE [Concomitant]
     Dosage: NIGHTLY TO SCALP, SEVERAL TIMES A WEEK TO OTHER AFFECTED AREAS
     Route: 061
     Dates: start: 20050101

REACTIONS (1)
  - ACCIDENTAL EXPOSURE [None]
